FAERS Safety Report 8923275 (Version 1)
Quarter: 2012Q4

REPORT INFORMATION
  Report Type: Spontaneous
  Country: BR (occurrence: None)
  Receive Date: 20121115
  Receipt Date: 20121115
  Transmission Date: 20130627
  Serious: Yes (Other)
  Sender: FDA-Public Use
  Company Number: DKLU1086218

PATIENT
  Age: 12 Year
  Sex: Female

DRUGS (5)
  1. SABRIL (TABLET) (SABRIL) (VIGABATRIN) (500 MG, TABLET) [Suspect]
     Indication: EPILEPSY
     Route: 048
     Dates: start: 20090630, end: 20121019
  2. ONFI (CLOBAZAM) (CLOBAZAM) [Concomitant]
  3. SERTRALINE [Concomitant]
  4. OMEPRAZOLE [Concomitant]
  5. FOLIC ACID [Concomitant]

REACTIONS (4)
  - Suicidal ideation [None]
  - Hallucination [None]
  - Mood altered [None]
  - Convulsion [None]
